FAERS Safety Report 8048259-6 (Version None)
Quarter: 2012Q1

REPORT INFORMATION
  Report Type: 
  Country: None (occurrence: None)
  Receive Date: 20120117
  Receipt Date: 20120110
  Transmission Date: 20120608
  Serious: Yes (Other)
  Sender: FDA-Public Use
  Company Number: JP-GENZYME-FLUD-1001264

PATIENT

DRUGS (6)
  1. MELPHALAN [Suspect]
     Indication: MULTIPLE MYELOMA
     Dosage: 100 MG/M2, UNK
     Route: 065
     Dates: start: 20080601
  2. FLUDARA [Suspect]
     Indication: MULTIPLE MYELOMA
     Dosage: 125 MG/M2, UNK
     Route: 065
     Dates: start: 20080601
  3. MELPHALAN [Suspect]
     Indication: STEM CELL TRANSPLANT
  4. TACROLIMUS [Concomitant]
     Indication: PROPHYLAXIS AGAINST GRAFT VERSUS HOST DISEASE
     Dosage: UNK
  5. METHOTREXATE [Concomitant]
     Indication: PROPHYLAXIS AGAINST GRAFT VERSUS HOST DISEASE
  6. FLUDARA [Suspect]
     Indication: STEM CELL TRANSPLANT

REACTIONS (3)
  - CHRONIC GRAFT VERSUS HOST DISEASE [None]
  - GRAFT VERSUS HOST DISEASE [None]
  - PNEUMOCYSTIS JIROVECI PNEUMONIA [None]
